FAERS Safety Report 5286459-9 (Version None)
Quarter: 2007Q2

REPORT INFORMATION
  Report Type: 
  Country: None (occurrence: None)
  Receive Date: 20070404
  Receipt Date: 20070328
  Transmission Date: 20071010
  Serious: Yes (Other)
  Sender: FDA-Public Use
  Company Number: US-JNJFOC-20070307077

PATIENT
  Sex: Male
  Weight: 73.94 kg

DRUGS (7)
  1. DURAGESIC-100 [Suspect]
     Indication: FIBROMYALGIA
     Route: 062
  2. GLYCOLAX [Concomitant]
     Indication: LAXATIVE SUPPORTIVE CARE
     Route: 048
  3. CYMBALTA [Concomitant]
     Indication: DEPRESSION
     Route: 048
  4. FLOMAX [Concomitant]
     Route: 048
  5. TRIMETHOPRINE [Concomitant]
     Route: 048
  6. FINASTERIDE [Concomitant]
     Route: 048
  7. UROCIT-K [Concomitant]
     Indication: NEPHROLITHIASIS
     Route: 048

REACTIONS (3)
  - CORONARY ARTERY OCCLUSION [None]
  - DEVICE LEAKAGE [None]
  - PAIN IN EXTREMITY [None]
